FAERS Safety Report 11427282 (Version 1)
Quarter: 2015Q3

REPORT INFORMATION
  Report Type: Spontaneous
  Country: US (occurrence: US)
  Receive Date: 20150827
  Receipt Date: 20150827
  Transmission Date: 20151125
  Serious: Yes (Hospitalization)
  Sender: FDA-Public Use
  Company Number: US-SA-2014SA142949

PATIENT
  Age: 40 Year
  Sex: Male
  Weight: 70.3 kg

DRUGS (21)
  1. FUROSEMIDE. [Concomitant]
     Active Substance: FUROSEMIDE
  2. HYDROCODONE/PARACETAMOL [Concomitant]
  3. CARBAMAZEPINE. [Concomitant]
     Active Substance: CARBAMAZEPINE
  4. ZANTAC [Concomitant]
     Active Substance: RANITIDINE HYDROCHLORIDE
  5. PREDNISONE. [Concomitant]
     Active Substance: PREDNISONE
  6. LISINOPRIL. [Concomitant]
     Active Substance: LISINOPRIL
  7. CYMBALTA [Concomitant]
     Active Substance: DULOXETINE HYDROCHLORIDE
  8. LOSARTAN. [Concomitant]
     Active Substance: LOSARTAN
  9. GABAPENTIN. [Concomitant]
     Active Substance: GABAPENTIN
  10. PLAVIX [Concomitant]
     Active Substance: CLOPIDOGREL BISULFATE
  11. DIPHENHYDRAMINE. [Concomitant]
     Active Substance: DIPHENHYDRAMINE
  12. WATER. [Concomitant]
     Active Substance: WATER
  13. PENICILLIN NOS [Concomitant]
     Active Substance: PENICILLIN
  14. SODIUM CHLORIDE. [Concomitant]
     Active Substance: SODIUM CHLORIDE
  15. EPIPEN [Concomitant]
     Active Substance: EPINEPHRINE
  16. HEPARIN [Concomitant]
     Active Substance: HEPARIN SODIUM
  17. FABRAZYME [Suspect]
     Active Substance: AGALSIDASE BETA
     Indication: LIPIDOSIS
     Route: 042
     Dates: start: 20100409
  18. NORMAL SALINE [Concomitant]
     Active Substance: SODIUM CHLORIDE
  19. SOLU-CORTEF [Concomitant]
     Active Substance: HYDROCORTISONE SODIUM SUCCINATE
  20. AZITHROMYCIN [Concomitant]
     Active Substance: AZITHROMYCIN ANHYDROUS
  21. IMODIUM [Concomitant]
     Active Substance: LOPERAMIDE HYDROCHLORIDE

REACTIONS (2)
  - Chest pain [Unknown]
  - Hypertension [Unknown]
